FAERS Safety Report 8123226-2 (Version None)
Quarter: 2012Q1

REPORT INFORMATION
  Report Type: 
  Country: None (occurrence: None)
  Receive Date: 20120208
  Receipt Date: 20120131
  Transmission Date: 20120608
  Serious: Yes (Congenital Anomaly, Other)
  Sender: FDA-Public Use
  Company Number: US-ABBOTT-12P-163-0900456-00

PATIENT
  Sex: Male

DRUGS (1)
  1. DEPAKOTE [Suspect]
     Indication: MATERNAL EXPOSURE TIMING UNSPECIFIED
     Route: 064

REACTIONS (11)
  - PHYSICAL DISABILITY [None]
  - PAIN [None]
  - ANHEDONIA [None]
  - ECONOMIC PROBLEM [None]
  - DISSOCIATION [None]
  - FOETAL EXPOSURE DURING PREGNANCY [None]
  - EMOTIONAL DISTRESS [None]
  - IMPAIRED WORK ABILITY [None]
  - DEFORMITY [None]
  - INJURY [None]
  - ANXIETY [None]
